FAERS Safety Report 9384890 (Version 2)
Quarter: 2013Q3

REPORT INFORMATION
  Report Type: Spontaneous
  Country: JP (occurrence: None)
  Receive Date: 20130701
  Receipt Date: 20130715
  Transmission Date: 20140515
  Serious: Yes (Other)
  Sender: FDA-Public Use
  Company Number: SP06762

PATIENT
  Age: 74 Year
  Sex: Female

DRUGS (2)
  1. MOVIPREP [Suspect]
     Indication: BOWEL PREPARATION
     Dosage: 2 LIT
     Route: 048
     Dates: start: 20130603, end: 20130603
  2. DORMICUM [Suspect]
     Indication: SEDATIVE THERAPY
     Route: 042
     Dates: start: 20130603, end: 20130603

REACTIONS (2)
  - Blood pressure decreased [None]
  - Nausea [None]
